FAERS Safety Report 11990152 (Version 1)
Quarter: 2016Q1

REPORT INFORMATION
  Report Type: Spontaneous
  Country: US (occurrence: US)
  Receive Date: 20160202
  Receipt Date: 20160202
  Transmission Date: 20160526
  Serious: Yes (Death)
  Sender: FDA-Public Use
  Company Number: US-FRESENIUS MEDICAL CARE NORTH AMERICA-1047207

PATIENT
  Age: 57 Year
  Sex: Male
  Weight: 117 kg

DRUGS (1)
  1. DELFLEX [Suspect]
     Active Substance: CALCIUM CHLORIDE\DEXTROSE\MAGNESIUM CHLORIDE\SODIUM CHLORIDE\SODIUM LACTATE
     Indication: END STAGE RENAL DISEASE
     Route: 033
     Dates: start: 20141001

REACTIONS (7)
  - Peritonitis [Fatal]
  - Haematemesis [None]
  - Septic shock [Fatal]
  - Corynebacterium infection [None]
  - Product contamination [None]
  - Acute coronary syndrome [None]
  - Shock haemorrhagic [None]

NARRATIVE: CASE EVENT DATE: 20151225
